FAERS Safety Report 6845682-X (Version None)
Quarter: 2010Q3

REPORT INFORMATION
  Report Type: 
  Country: None (occurrence: None)
  Receive Date: 20100715
  Receipt Date: 20071012
  Transmission Date: 20110219
  Serious: No
  Sender: FDA-Public Use
  Company Number: US-PFIZER INC-2007071300

PATIENT
  Sex: Male

DRUGS (1)
  1. CHANTIX [Suspect]
     Indication: SMOKING CESSATION THERAPY
     Route: 048
     Dates: start: 20070819

REACTIONS (5)
  - ABNORMAL DREAMS [None]
  - ANXIETY [None]
  - NAUSEA [None]
  - NIGHTMARE [None]
  - VOMITING [None]
